FAERS Safety Report 9132385 (Version 1)
Quarter: 2013Q1

REPORT INFORMATION
  Report Type: Spontaneous
  Country: US (occurrence: US)
  Receive Date: 20130120
  Receipt Date: 20130120
  Transmission Date: 20140127
  Serious: No
  Sender: FDA-Public Use
  Company Number: US-ALLERGAN-1213350US

PATIENT
  Sex: Male

DRUGS (1)
  1. BOTOX? [Suspect]
     Indication: MUSCLE TWITCHING
     Dosage: UNK UNK, SINGLE
     Route: 030

REACTIONS (4)
  - Muscle twitching [Unknown]
  - Eyelid ptosis [Unknown]
  - Facial paresis [Unknown]
  - Off label use [Unknown]
